FAERS Safety Report 23091019 (Version 1)
Quarter: 2023Q4

REPORT INFORMATION
  Report Type: Spontaneous
  Country: US (occurrence: US)
  Receive Date: 20231020
  Receipt Date: 20231020
  Transmission Date: 20240110
  Serious: Yes (Other)
  Sender: FDA-Public Use
  Company Number: US-BRISTOL-MYERS SQUIBB COMPANY-2023-149092

PATIENT
  Age: 67 Year
  Sex: Female
  Weight: 58.06 kg

DRUGS (9)
  1. ELIQUIS [Suspect]
     Active Substance: APIXABAN
     Indication: Atrial fibrillation
     Route: 048
  2. DILTIAZEM [Concomitant]
     Active Substance: DILTIAZEM
     Indication: Product used for unknown indication
  3. FLAXSEED [Concomitant]
     Active Substance: FLAX SEED
     Indication: Product used for unknown indication
  4. VITAMIN D NOS [Concomitant]
     Active Substance: VITAMIN D NOS
     Indication: Product used for unknown indication
  5. CALCIUM [Concomitant]
     Active Substance: CALCIUM
     Indication: Product used for unknown indication
  6. ZINC [Concomitant]
     Active Substance: PYRITHIONE ZINC\ZINC\ZINC CHLORIDE
     Indication: Product used for unknown indication
  7. VITAMINS NOS [Concomitant]
     Active Substance: VITAMINS
     Indication: Product used for unknown indication
  8. COENZYME Q10 [Concomitant]
     Active Substance: DIETARY SUPPLEMENT\UBIDECARENONE
     Indication: Product used for unknown indication
  9. FIBERCON [Concomitant]
     Active Substance: CALCIUM POLYCARBOPHIL
     Indication: Product used for unknown indication

REACTIONS (2)
  - Fall [Unknown]
  - Wrist fracture [Unknown]

NARRATIVE: CASE EVENT DATE: 20230907
